FAERS Safety Report 9248255 (Version 4)
Quarter: 2014Q1

REPORT INFORMATION
  Report Type: Spontaneous
  Country: US (occurrence: US)
  Receive Date: 20130423
  Receipt Date: 20140219
  Transmission Date: 20141002
  Serious: Yes (Death, Hospitalization, Other)
  Sender: FDA-Public Use
  Company Number: US-ASTRAZENECA-2013SE27232

PATIENT
  Age: 74 Year
  Sex: Female
  Weight: 27.2 kg

DRUGS (15)
  1. NEXIUM [Suspect]
     Indication: GASTROOESOPHAGEAL REFLUX DISEASE
     Route: 048
     Dates: start: 200701, end: 201105
  2. NEXIUM [Suspect]
     Indication: GASTROOESOPHAGEAL REFLUX DISEASE
     Dosage: AS NEEDED
     Route: 048
     Dates: start: 200701, end: 201105
  3. NEXIUM [Suspect]
     Indication: GASTROOESOPHAGEAL REFLUX DISEASE
     Dosage: ONCE A DAY
     Route: 048
     Dates: start: 200701, end: 201205
  4. NEXIUM [Suspect]
     Indication: GASTROOESOPHAGEAL REFLUX DISEASE
     Route: 048
     Dates: start: 20070227
  5. OMEPRAZOLE [Suspect]
     Indication: GASTROOESOPHAGEAL REFLUX DISEASE
     Route: 048
     Dates: start: 201105, end: 201205
  6. HYDROCODONE [Concomitant]
     Indication: PAIN
  7. MORPHINE [Concomitant]
     Indication: PAIN
  8. METHOTREXATE [Concomitant]
     Dates: start: 20070219
  9. PREDNISONE [Concomitant]
     Dates: start: 20070219
  10. FOLIC ACID [Concomitant]
     Dates: start: 20070219
  11. SYNTHROID [Concomitant]
     Dates: start: 20070227
  12. TRAMADOL HCL- ACETAMINO [Concomitant]
     Dosage: 37.5/32
     Dates: start: 20070322
  13. HYDROXYZINE HCL [Concomitant]
     Dates: start: 20070322
  14. DESOXIMETASONE [Concomitant]
     Dates: start: 20070322
  15. ZYRTEC [Concomitant]
     Dates: start: 20070322

REACTIONS (15)
  - Respiratory failure [Fatal]
  - Asthenia [Fatal]
  - Fall [Fatal]
  - Hip fracture [Fatal]
  - Dementia Alzheimer^s type [Unknown]
  - Hernia [Unknown]
  - Osteoporosis [Not Recovered/Not Resolved]
  - Bone density decreased [Unknown]
  - Bone disorder [Unknown]
  - Chest pain [Unknown]
  - Arthritis [Unknown]
  - Hypothyroidism [Unknown]
  - Rheumatoid arthritis [Unknown]
  - Foot fracture [Unknown]
  - Depression [Unknown]
